FAERS Safety Report 24383154 (Version 1)
Quarter: 2024Q4

REPORT INFORMATION
  Report Type: Spontaneous
  Country: US (occurrence: US)
  Receive Date: 20241001
  Receipt Date: 20241001
  Transmission Date: 20250115
  Serious: No
  Sender: CATALYST PHARMA
  Company Number: US-CATALYST PHARMACEUTICALS-US-CATA-24-00463

PATIENT
  Age: 9 Year
  Sex: Male
  Weight: 36.993 kg

DRUGS (2)
  1. AGAMREE [Suspect]
     Active Substance: VAMOROLONE
     Indication: Duchenne muscular dystrophy
     Dosage: 3 ML DAILY
     Route: 048
     Dates: start: 20240207
  2. FLINTSTONES MULTIVITAMIN [Concomitant]
     Indication: Hypovitaminosis
     Dosage: ONCE DAILY
     Route: 065

REACTIONS (1)
  - Influenza [Recovering/Resolving]

NARRATIVE: CASE EVENT DATE: 20240518
